FAERS Safety Report 17164547 (Version 1)
Quarter: 2019Q4

REPORT INFORMATION
  Report Type: Spontaneous
  Country: US (occurrence: US)
  Receive Date: 20191217
  Receipt Date: 20191217
  Transmission Date: 20200122
  Serious: No
  Sender: FDA-Public Use
  Company Number: US-PERRIGO-19US008977

PATIENT
  Age: 87 Year
  Sex: Female

DRUGS (1)
  1. NYSTATIN. [Suspect]
     Active Substance: NYSTATIN
     Indication: PRODUCT USED FOR UNKNOWN INDICATION
     Dosage: UNK, UNK
     Route: 061
     Dates: start: 20190103

REACTIONS (5)
  - Application site reaction [Unknown]
  - Application site pain [Unknown]
  - Contraindicated product administered [Unknown]
  - Application site irritation [Unknown]
  - Application site erythema [Unknown]

NARRATIVE: CASE EVENT DATE: 201901
